FAERS Safety Report 11317370 (Version 6)
Quarter: 2017Q2

REPORT INFORMATION
  Report Type: Spontaneous
  Country: JP (occurrence: JP)
  Receive Date: 20150728
  Receipt Date: 20170413
  Transmission Date: 20170829
  Serious: Yes (Hospitalization, Other)
  Sender: FDA-Public Use
  Company Number: JP-B.I. PHARMACEUTICALS,INC./RIDGEFIELD-2015-BI-40530GD

PATIENT
  Age: 81 Year
  Sex: Male
  Weight: 57 kg

DRUGS (9)
  1. ZYLORIC [Concomitant]
     Active Substance: ALLOPURINOL
     Indication: HYPERURICAEMIA
     Route: 048
     Dates: end: 20141230
  2. LYRICA [Concomitant]
     Active Substance: PREGABALIN
     Indication: PAIN
     Route: 048
     Dates: end: 20141230
  3. PRAZAXA [Suspect]
     Active Substance: DABIGATRAN ETEXILATE MESYLATE
     Indication: ATRIAL FIBRILLATION
     Route: 048
     Dates: start: 20110415, end: 20141230
  4. BIOFERMIN [Concomitant]
     Active Substance: BACILLUS SUBTILIS\LACTOBACILLUS ACIDOPHILUS\STREPTOCOCCUS FAECAIS
     Indication: CONSTIPATION
     Route: 048
     Dates: start: 20141016, end: 20141230
  5. MAGMITT [Concomitant]
     Active Substance: MAGNESIUM OXIDE
     Indication: CONSTIPATION
     Route: 048
     Dates: start: 20140909, end: 20141230
  6. ADOFEED [Concomitant]
     Active Substance: FLURBIPROFEN
     Indication: PAIN
     Route: 062
     Dates: end: 20141230
  7. LASIX [Concomitant]
     Active Substance: FUROSEMIDE
     Indication: CARDIAC FAILURE CHRONIC
     Route: 048
     Dates: start: 20141117
  8. FERROMIA [Suspect]
     Active Substance: FERROUS CITRATE
     Indication: IRON DEFICIENCY ANAEMIA
     Route: 048
     Dates: start: 20141016, end: 20141230
  9. PURSENNID [Concomitant]
     Active Substance: SENNOSIDES A AND B
     Indication: CONSTIPATION
     Route: 048
     Dates: start: 20141016, end: 20141230

REACTIONS (5)
  - Neuralgia [Recovered/Resolved]
  - Iron deficiency anaemia [Not Recovered/Not Resolved]
  - Colon cancer [Recovering/Resolving]
  - Oesophageal haemorrhage [Recovering/Resolving]
  - Oesophageal rupture [Recovering/Resolving]

NARRATIVE: CASE EVENT DATE: 20131007
